FAERS Safety Report 12961536 (Version 1)
Quarter: 2016Q4

REPORT INFORMATION
  Report Type: Spontaneous
  Country: JP (occurrence: JP)
  Receive Date: 20161121
  Receipt Date: 20161121
  Transmission Date: 20170207
  Serious: Yes (Hospitalization)
  Sender: FDA-Public Use
  Company Number: JP-CORDEN PHARMA LATINA S.P.A.-JP-2016COR000245

PATIENT
  Sex: Male

DRUGS (5)
  1. GEMCITABINE [Suspect]
     Active Substance: GEMCITABINE\GEMCITABINE HYDROCHLORIDE
     Indication: THYMOMA MALIGNANT RECURRENT
     Dosage: UNK
  2. ETOPOSIDE. [Suspect]
     Active Substance: ETOPOSIDE
     Indication: THYMOMA MALIGNANT RECURRENT
     Dosage: UNK
  3. CISPLATIN. [Suspect]
     Active Substance: CISPLATIN
     Indication: THYMOMA MALIGNANT RECURRENT
     Dosage: UNK
  4. PACLITAXEL. [Suspect]
     Active Substance: PACLITAXEL
     Indication: THYMOMA MALIGNANT RECURRENT
     Dosage: UNK
  5. PEMETREXED [Suspect]
     Active Substance: PEMETREXED
     Indication: THYMOMA MALIGNANT RECURRENT
     Dosage: UNK

REACTIONS (8)
  - Autoimmune haemolytic anaemia [Recovering/Resolving]
  - Coombs test positive [Recovering/Resolving]
  - Haemoglobin decreased [Recovering/Resolving]
  - Erythroblast count increased [Recovering/Resolving]
  - Blood bilirubin increased [Recovering/Resolving]
  - Haptoglobin decreased [Recovering/Resolving]
  - Urobilinogen urine increased [Recovering/Resolving]
  - Reticulocytosis [Recovering/Resolving]
